FAERS Safety Report 9477201 (Version 3)
Quarter: 2013Q3

REPORT INFORMATION
  Report Type: Spontaneous
  Country: JP (occurrence: JP)
  Receive Date: 20130826
  Receipt Date: 20130903
  Transmission Date: 20140515
  Serious: Yes (Hospitalization)
  Sender: FDA-Public Use
  Company Number: JP-BAYER-2013-102589

PATIENT
  Age: 85 Year
  Sex: Male
  Weight: 59.86 kg

DRUGS (9)
  1. BAYASPIRIN [Suspect]
     Dosage: 100 MG, QD
     Route: 048
  2. CLOPIDOGREL SULFATE [Interacting]
     Dosage: 75 MG, QD
     Route: 048
  3. NICORANDIL [Concomitant]
     Dosage: 15 MG, TID
     Route: 048
  4. CARVEDILOL [Concomitant]
     Dosage: 2.5 MG, QD
     Route: 048
  5. ISOSORBIDE [Concomitant]
     Dosage: 40 MG, BID
     Route: 048
  6. OLMESARTAN [Concomitant]
     Dosage: 40 MG, BID
     Route: 048
  7. AMLODIPINE [Concomitant]
     Dosage: 10 MG, QD
     Route: 048
  8. LANSOPRAZOLE [Concomitant]
     Dosage: 15 MG, QD
     Route: 048
  9. EXTRANEAL [Concomitant]
     Dosage: 1.5 L, QD
     Route: 033

REACTIONS (4)
  - Scrotal haematocoele [None]
  - Peritonitis [Recovered/Resolved]
  - Inguinal hernia, obstructive [Recovered/Resolved]
  - Labelled drug-drug interaction medication error [None]
